FAERS Safety Report 17241557 (Version 1)
Quarter: 2020Q1

REPORT INFORMATION
  Report Type: Spontaneous
  Country: US (occurrence: US)
  Receive Date: 20200107
  Receipt Date: 20200107
  Transmission Date: 20200409
  Serious: No
  Sender: FDA-Public Use
  Company Number: US-MYLANLABS-2019M1132906

PATIENT
  Age: 29 Year
  Sex: Female
  Weight: 109 kg

DRUGS (1)
  1. XULANE [Suspect]
     Active Substance: ETHINYL ESTRADIOL\NORELGESTROMIN
     Indication: CONTRACEPTION
     Dosage: UNK UNK, QW (1 WEEKLY)
     Route: 062
     Dates: start: 20190801, end: 20191205

REACTIONS (3)
  - Application site pruritus [Not Recovered/Not Resolved]
  - Application site swelling [Not Recovered/Not Resolved]
  - Application site rash [Not Recovered/Not Resolved]

NARRATIVE: CASE EVENT DATE: 20191205
